FAERS Safety Report 24433178 (Version 1)
Quarter: 2024Q4

REPORT INFORMATION
  Report Type: Spontaneous
  Country: CN (occurrence: CN)
  Receive Date: 20241014
  Receipt Date: 20241014
  Transmission Date: 20250115
  Serious: Yes (Hospitalization)
  Sender: NOVARTIS
  Company Number: CN-002147023-NVSC2024CN200072

PATIENT
  Age: 83 Year
  Sex: Male
  Weight: 65 kg

DRUGS (1)
  1. CARBAMAZEPINE [Suspect]
     Active Substance: CARBAMAZEPINE
     Indication: Trigeminal neuralgia
     Dosage: 0.2 G, BID
     Route: 048
     Dates: start: 20240921, end: 20240925

REACTIONS (8)
  - Erythema multiforme [Recovering/Resolving]
  - Drug eruption [Unknown]
  - Pruritus [Unknown]
  - C-reactive protein increased [Unknown]
  - Skin exfoliation [Unknown]
  - Pain [Unknown]
  - Papule [Unknown]
  - Pigmentation disorder [Unknown]

NARRATIVE: CASE EVENT DATE: 20240925
